FAERS Safety Report 19200793 (Version 1)
Quarter: 2021Q2

REPORT INFORMATION
  Report Type: Spontaneous
  Country: US (occurrence: US)
  Receive Date: 20210430
  Receipt Date: 20210430
  Transmission Date: 20210717
  Serious: Yes (Hospitalization, Other)
  Sender: FDA-Public Use
  Company Number: US-MICRO LABS LIMITED-ML2021-01209

PATIENT
  Age: 64 Year
  Sex: Female

DRUGS (6)
  1. HEPARIN [Suspect]
     Active Substance: HEPARIN SODIUM
     Indication: ISCHAEMIC STROKE
     Route: 041
  2. ASPIRIN 81 MG [Suspect]
     Active Substance: ASPIRIN
  3. APIXABAN [Suspect]
     Active Substance: APIXABAN
     Indication: ISCHAEMIC STROKE
  4. ENOXAPARIN [Concomitant]
     Active Substance: ENOXAPARIN
  5. LISINOPRIL. [Concomitant]
     Active Substance: LISINOPRIL
  6. ATORVASTATIN [Concomitant]
     Active Substance: ATORVASTATIN

REACTIONS (1)
  - Drug ineffective [Unknown]
